FAERS Safety Report 6323461-X (Version None)
Quarter: 2009Q3

REPORT INFORMATION
  Report Type: 
  Country: None (occurrence: None)
  Receive Date: 20090824
  Receipt Date: 20090323
  Transmission Date: 20100115
  Serious: No
  Sender: FDA-Public Use
  Company Number: US-ABBOTT-09P-163-0564431-00

PATIENT
  Sex: Male
  Weight: 88.53 kg

DRUGS (7)
  1. NIASPAN [Suspect]
     Indication: HIGH DENSITY LIPOPROTEIN DECREASED
     Route: 048
     Dates: start: 20080201, end: 20081101
  2. NIASPAN [Suspect]
     Route: 048
     Dates: start: 20081101
  3. CRESTOR [Concomitant]
     Indication: BLOOD CHOLESTEROL
  4. TRICOR [Concomitant]
     Indication: BLOOD CHOLESTEROL
     Route: 048
  5. MULTI-VITAMIN [Concomitant]
     Indication: VITAMIN SUPPLEMENTATION
     Route: 048
  6. ASPIRIN [Concomitant]
     Indication: FLUSHING
     Route: 048
  7. ASPIRIN [Concomitant]
     Indication: PROPHYLAXIS

REACTIONS (3)
  - FLUSHING [None]
  - HIGH DENSITY LIPOPROTEIN ABNORMAL [None]
  - PRURITUS [None]
